FAERS Safety Report 21839607 (Version 1)
Quarter: 2023Q1

REPORT INFORMATION
  Report Type: Report from Study
  Country: US (occurrence: US)
  Receive Date: 20230109
  Receipt Date: 20230109
  Transmission Date: 20230418
  Serious: Yes (Hospitalization, Other)
  Sender: FDA-Public Use
  Company Number: US-ABBVIE-4261337

PATIENT
  Age: 22 Year
  Sex: Male

DRUGS (1)
  1. SKYRIZI [Suspect]
     Active Substance: RISANKIZUMAB-RZAA
     Indication: Crohn^s disease
     Route: 058
     Dates: start: 20221209, end: 20221220

REACTIONS (6)
  - Staphylococcal infection [Not Recovered/Not Resolved]
  - Medical device pain [Not Recovered/Not Resolved]
  - Haemophagocytic lymphohistiocytosis [Not Recovered/Not Resolved]
  - Epstein-Barr virus infection [Not Recovered/Not Resolved]
  - Hepatic enzyme increased [Unknown]
  - Pyrexia [Unknown]

NARRATIVE: CASE EVENT DATE: 20221219
